FAERS Safety Report 23657522 (Version 1)
Quarter: 2024Q1

REPORT INFORMATION
  Report Type: Spontaneous
  Country: GB (occurrence: GB)
  Receive Date: 20240321
  Receipt Date: 20240321
  Transmission Date: 20240410
  Serious: Yes (Hospitalization)
  Sender: FDA-Public Use
  Company Number: None

PATIENT
  Age: 59 Year
  Sex: Male

DRUGS (22)
  1. OLANZAPINE [Suspect]
     Active Substance: OLANZAPINE
     Indication: Product used for unknown indication
     Dosage: 20 MG, DAILY?DAILY DOSE: 1 DOSAGE FORM
  2. AMITRIPTYLINE [Suspect]
     Active Substance: AMITRIPTYLINE
     Indication: Product used for unknown indication
     Dosage: 30 MG, DAILY (EVERY NIGHT)?DAILY DOSE: 3 DOSAGE FORM
  3. CITALOPRAM [Suspect]
     Active Substance: CITALOPRAM\CITALOPRAM HYDROBROMIDE
     Indication: Product used for unknown indication
     Dosage: TOTAL DAILY DOSE 30MG?DAILY DOSE: 30 MILLIGRAM
  4. CITALOPRAM [Suspect]
     Active Substance: CITALOPRAM\CITALOPRAM HYDROBROMIDE
     Indication: Product used for unknown indication
     Dosage: TOTAL DAILY DOSE 30MG?DAILY DOSE: 30 MILLIGRAM
  5. MIRTAZAPINE [Suspect]
     Active Substance: MIRTAZAPINE
     Indication: Product used for unknown indication
     Dosage: 30 MG, DAILY (EVERY NIGHT)?DAILY DOSE: 1 DOSAGE FORM
  6. PREGABALIN [Suspect]
     Active Substance: PREGABALIN
     Indication: Product used for unknown indication
     Dosage: 50 MG, BID?DAILY DOSE: 2 DOSAGE FORM
  7. PROMETHAZINE HYDROCHLORIDE [Suspect]
     Active Substance: PROMETHAZINE HYDROCHLORIDE
     Indication: Product used for unknown indication
     Dosage: 25 MG, DAILY (EVERY NIGHT)?DAILY DOSE: 1 DOSAGE FORM
  8. TRAMADOL [Suspect]
     Active Substance: TRAMADOL\TRAMADOL HYDROCHLORIDE
     Indication: Product used for unknown indication
     Dosage: 50MG-100MG 4-6 HRLY
  9. AMISULPRIDE [Concomitant]
     Active Substance: AMISULPRIDE
     Dosage: 50 MG, DAILY?DAILY DOSE: 1 DOSAGE FORM
  10. AMLODIPINE [Concomitant]
     Active Substance: AMLODIPINE BESYLATE
     Dosage: 10 MG, DAILY?DAILY DOSE: 1 DOSAGE FORM
  11. BACLOFEN [Concomitant]
     Active Substance: BACLOFEN
     Dosage: 10 MG, TID?DAILY DOSE: 3 DOSAGE FORM
  12. ISPAGHULA EXTRACT\PSYLLIUM [Concomitant]
     Active Substance: HERBALS\PLANTAGO OVATA SEED\PLANTAGO SEED
     Dosage: 1 DOSAGE FORM, BID?TOTAL DOSE: 2 DOSAGE FORM?3.5 MG PER DAY?DAILY DOSE: 2 DOSAGE FORM
     Dates: start: 20210920, end: 20210920
  13. LANSOPRAZOLE [Concomitant]
     Active Substance: LANSOPRAZOLE
     Dosage: 30 MG, DAILY (EVERY MORNING)?DAILY DOSE: 1 DOSAGE FORM
  14. LEVOTHYROXINE [Concomitant]
     Active Substance: LEVOTHYROXINE\LEVOTHYROXINE SODIUM
     Dosage: TOTAL DAILY DOSE 175MCG?DAILY DOSE: 175 MICROGRAM
  15. LEVOTHYROXINE [Concomitant]
     Active Substance: LEVOTHYROXINE\LEVOTHYROXINE SODIUM
     Dosage: TOTAL DAILY DOSE 175MCG?DAILY DOSE: 175 MICROGRAM
  16. LEVOTHYROXINE [Concomitant]
     Active Substance: LEVOTHYROXINE\LEVOTHYROXINE SODIUM
     Dosage: TOTAL DAILY DOSE 175MCG?DAILY DOSE: 175 MICROGRAM
  17. LOPERAMIDE [Concomitant]
     Active Substance: LOPERAMIDE
     Dosage: 1MG/5ML ORAL SOLUTION - 10 - 20MLS TDS PRN
  18. NAPROXEN [Concomitant]
     Active Substance: NAPROXEN
     Dosage: 500 MG, BID?DAILY DOSE: 2 DOSAGE FORM
  19. PERINDOPRIL ERBUMINE [Concomitant]
     Active Substance: PERINDOPRIL ERBUMINE
     Dosage: 8 MG, DAILY (EVERY NIGHT)?DAILY DOSE: 1 DOSAGE FORM
  20. SILDENAFIL [Concomitant]
     Active Substance: SILDENAFIL
     Dosage: 100 MG, ONE TO BE TAKEN AS DIRECTED - NOT TO BE PRESCRIBED IN HOSPITAL
  21. THIAMINE [Concomitant]
     Active Substance: THIAMINE
     Dosage: 100 MG, TID?DAILY DOSE: 3 DOSAGE FORM
  22. LANOLIN\LIGHT MINERAL OIL\PARAFFIN [Concomitant]
     Active Substance: LANOLIN\LIGHT MINERAL OIL\PARAFFIN

REACTIONS (1)
  - Serotonin syndrome [Unknown]
